FAERS Safety Report 6105059-1 (Version None)
Quarter: 2009Q1

REPORT INFORMATION
  Report Type: 
  Country: None (occurrence: None)
  Receive Date: 20090306
  Receipt Date: 20090203
  Transmission Date: 20090719
  Serious: No
  Sender: FDA-Public Use
  Company Number: US-BAYER-200912919NA

PATIENT
  Sex: Female

DRUGS (5)
  1. DROSPIRENONE AND ETHINYL ESTRADIOL [Suspect]
     Indication: MENSTRUATION IRREGULAR
     Route: 048
     Dates: start: 20090105
  2. THYROID MEDICATION NOS [Concomitant]
  3. TEGRETOL [Concomitant]
     Indication: CONVULSION
     Dosage: UNIT DOSE: 200 MG
  4. PAIN MEDICATION NOS [Concomitant]
     Indication: DYSMENORRHOEA
  5. ACETAMINOPHEN AND HYDROCODONE BITARTRATE [Concomitant]
     Indication: PAIN

REACTIONS (9)
  - ABDOMINAL DISCOMFORT [None]
  - ABDOMINAL PAIN [None]
  - CONSTIPATION [None]
  - DYSURIA [None]
  - HEADACHE [None]
  - METRORRHAGIA [None]
  - NAUSEA [None]
  - NO ADVERSE EVENT [None]
  - VAGINAL HAEMORRHAGE [None]
